FAERS Safety Report 9096989 (Version 1)
Quarter: 2013Q1

REPORT INFORMATION
  Report Type: Spontaneous
  Country: US (occurrence: None)
  Receive Date: 20130124
  Receipt Date: 20130124
  Transmission Date: 20140127
  Serious: Yes (Other)
  Sender: FDA-Public Use
  Company Number: 2013SA004826

PATIENT
  Age: 69 Year
  Sex: Female

DRUGS (1)
  1. ICY HOT POWER GEL / UNKNOWN / UNKNOWN [Suspect]
     Indication: NECK PAIN
     Route: 061
     Dates: start: 20130101

REACTIONS (2)
  - Application site burn [None]
  - Scar [None]
